FAERS Safety Report 8354029-1 (Version None)
Quarter: 2012Q2

REPORT INFORMATION
  Report Type: 
  Country: None (occurrence: None)
  Receive Date: 20120511
  Receipt Date: 20120503
  Transmission Date: 20120825
  Serious: Yes (Other)
  Sender: FDA-Public Use
  Company Number: US-UCBSA-056767

PATIENT
  Sex: Female

DRUGS (4)
  1. KEPPRA [Suspect]
     Indication: CONVULSION
     Route: 048
  2. LAMICTAL [Concomitant]
     Indication: CONVULSION
     Dates: start: 20080101
  3. TOPAMAX [Concomitant]
     Indication: CONVULSION
     Dates: end: 20120101
  4. VIMPAT [Suspect]
     Indication: CONVULSION
     Route: 048
     Dates: start: 20120101

REACTIONS (1)
  - CONVULSION [None]
